FAERS Safety Report 9730821 (Version 1)
Quarter: 2013Q4

REPORT INFORMATION
  Report Type: Spontaneous
  Country: FR (occurrence: FR)
  Receive Date: 20131205
  Receipt Date: 20131205
  Transmission Date: 20140711
  Serious: Yes (Life-Threatening, Hospitalization, Other)
  Sender: FDA-Public Use
  Company Number: FR-ROCHE-1311798

PATIENT
  Sex: Female

DRUGS (8)
  1. XOLAIR [Suspect]
     Indication: ASTHMA
     Route: 058
     Dates: start: 20070712
  2. XOLAIR [Suspect]
     Indication: NASAL POLYPS
     Route: 065
  3. XOLAIR [Suspect]
     Indication: SINUS POLYP
     Route: 058
     Dates: end: 20090504
  4. XOLAIR [Suspect]
     Indication: HYPERSENSITIVITY
     Route: 058
     Dates: start: 20120820
  5. XOLAIR [Suspect]
     Indication: ANALGESIC ASTHMA SYNDROME
  6. SINGULAIR [Concomitant]
  7. SPIRIVA [Concomitant]
  8. SERETIDE [Concomitant]

REACTIONS (6)
  - Thrombocytopenic purpura [Recovered/Resolved]
  - Haematoma [Unknown]
  - Bone pain [Recovered/Resolved]
  - Myalgia [Recovered/Resolved]
  - Arthralgia [Recovered/Resolved]
  - Oedema peripheral [Recovered/Resolved]
